FAERS Safety Report 8524402-7 (Version None)
Quarter: 2012Q3

REPORT INFORMATION
  Report Type: 
  Country: None (occurrence: None)
  Receive Date: 20120720
  Receipt Date: 20120717
  Transmission Date: 20120928
  Serious: Yes (Other)
  Sender: FDA-Public Use
  Company Number: US-PFIZER INC-2012110943

PATIENT
  Sex: Male
  Weight: 73 kg

DRUGS (9)
  1. NEURONTIN [Suspect]
     Dosage: 300 MG, 2X/DAY (X 2DAYS)
  2. ZOLPIDEM [Concomitant]
     Indication: INSOMNIA
     Dosage: 5 MG, 1X/DAY, 1 TABLET BY MOUTH EVERY EVENING AT BEDTIME
     Route: 048
  3. NEURONTIN [Suspect]
     Dosage: 300 MG, 3X/DAY
  4. NEURONTIN [Suspect]
     Dosage: 300 MG, 2X/DAY
     Route: 048
  5. PRILOSEC [Concomitant]
     Dosage: UNK, 1X/DAY
     Route: 048
  6. ACETYLSALICYLIC ACID [Concomitant]
     Dosage: 81 MG, 1X/DAY
     Route: 048
  7. DEXAMETHASONE [Concomitant]
     Dosage: 4 MG, 2X/DAY
     Route: 048
  8. NEURONTIN [Suspect]
     Indication: NEUROPATHY PERIPHERAL
     Dosage: 300 MG, 1X/DAY (X 2DAYS)
  9. METHYLPREDNISOLONE [Concomitant]
     Dosage: 32 MG, 2X/DAY, 1 TABLET BY MOUTH TWICE A DAY FOR ONE TIME ONLY.
     Route: 048

REACTIONS (1)
  - MALIGNANT MELANOMA [None]
